FAERS Safety Report 7380704-1 (Version None)
Quarter: 2011Q1

REPORT INFORMATION
  Report Type: 
  Country: None (occurrence: None)
  Receive Date: 20110329
  Receipt Date: 20110323
  Transmission Date: 20110831
  Serious: No
  Sender: FDA-Public Use
  Company Number: US-PFIZER INC-2011064939

PATIENT
  Sex: Male
  Weight: 27.211 kg

DRUGS (2)
  1. SYNTHROID [Concomitant]
     Dosage: UNK
  2. GENOTROPIN [Suspect]
     Indication: BLOOD GROWTH HORMONE
     Dosage: UNK MG, 1X/DAY
     Dates: start: 20010101

REACTIONS (1)
  - ELBOW DEFORMITY [None]
